FAERS Safety Report 7007923-8 (Version None)
Quarter: 2010Q3

REPORT INFORMATION
  Report Type: 
  Country: None (occurrence: None)
  Receive Date: 20100922
  Receipt Date: 20100910
  Transmission Date: 20110219
  Serious: Yes (Other)
  Sender: FDA-Public Use
  Company Number: US-PFIZER INC-2010111331

PATIENT
  Sex: Female
  Weight: 77.098 kg

DRUGS (8)
  1. DETROL LA [Suspect]
     Indication: AUTOMATIC BLADDER
     Dosage: 4 MG, 1X/DAY
     Route: 048
     Dates: start: 20100101, end: 20100801
  2. TOVIAZ [Concomitant]
     Indication: AUTOMATIC BLADDER
     Dosage: 4 MG, 1X/DAY
     Route: 048
     Dates: start: 20100828
  3. GLYBURIDE [Concomitant]
     Indication: DIABETES MELLITUS
     Dosage: 2 TAB AM + 1 TAB PM
     Route: 048
  4. ACETYLSALICYLIC ACID [Concomitant]
     Dosage: 81 MG, 1X/DAY
  5. METOPROLOL [Concomitant]
     Indication: HYPERTENSION
     Dosage: 25 MG, 1X/DAY
  6. PLAVIX [Concomitant]
     Indication: CARDIAC DISORDER
     Dosage: 50 MG, 1X/DAY
     Route: 048
  7. SIMVASTATIN [Concomitant]
     Indication: BLOOD CHOLESTEROL ABNORMAL
     Dosage: 20 MG, 1X/DAY
  8. OXAPROZIN [Concomitant]
     Indication: ARTHRITIS
     Dosage: 600 MG, AS NEEDED
     Route: 048

REACTIONS (1)
  - POLLAKIURIA [None]
